FAERS Safety Report 7865335-9 (Version None)
Quarter: 2011Q4

REPORT INFORMATION
  Report Type: 
  Country: None (occurrence: None)
  Receive Date: 20111028
  Receipt Date: 20101129
  Transmission Date: 20120403
  Serious: No
  Sender: FDA-Public Use
  Company Number: US-GLAXOSMITHKLINE-A0896705A

PATIENT
  Age: 80 Year
  Sex: Female

DRUGS (6)
  1. NASONEX [Concomitant]
  2. PLAVIX [Concomitant]
  3. ADVAIR DISKUS 100/50 [Suspect]
     Indication: CHRONIC OBSTRUCTIVE PULMONARY DISEASE
     Dosage: 1PUFF TWICE PER DAY
     Route: 055
     Dates: start: 20010101
  4. SPIRIVA [Concomitant]
  5. METHIMAZOLE [Concomitant]
  6. SINGULAIR [Concomitant]

REACTIONS (3)
  - EAR PAIN [None]
  - OROPHARYNGEAL PAIN [None]
  - CHEST PAIN [None]
